FAERS Safety Report 18286330 (Version 1)
Quarter: 2020Q3

REPORT INFORMATION
  Report Type: Spontaneous
  Country: US (occurrence: US)
  Receive Date: 20200920
  Receipt Date: 20200920
  Transmission Date: 20201103
  Serious: Yes (Hospitalization, Other)
  Sender: FDA-Public Use
  Company Number: US-NOVITIUMPHARMA-2020USNVP00061

PATIENT
  Age: 19 Year
  Sex: Female

DRUGS (4)
  1. VORICONAZOLE. [Suspect]
     Active Substance: VORICONAZOLE
     Indication: ANTIFUNGAL PROPHYLAXIS
  2. MICAFUNGIN. [Concomitant]
     Active Substance: MICAFUNGIN SODIUM
  3. CALCIUM GLUCONATE. [Suspect]
     Active Substance: CALCIUM GLUCONATE
     Indication: MINERAL SUPPLEMENTATION
     Dosage: 100 MG/ML AT 25 MG/KG/H.
  4. SIROLIMUS. [Suspect]
     Active Substance: SIROLIMUS
     Indication: PROPHYLAXIS AGAINST GRAFT VERSUS HOST DISEASE

REACTIONS (3)
  - Blood creatinine increased [Recovered/Resolved]
  - Toxicity to various agents [Recovered/Resolved]
  - Hypertension [Recovered/Resolved]
